FAERS Safety Report 17856273 (Version 1)
Quarter: 2020Q2

REPORT INFORMATION
  Report Type: Report from Study
  Country: US (occurrence: US)
  Receive Date: 20200603
  Receipt Date: 20200603
  Transmission Date: 20200714
  Serious: No
  Sender: FDA-Public Use
  Company Number: NVSC2020US137905

PATIENT
  Age: 60 Year
  Sex: Male
  Weight: 84.35 kg

DRUGS (1)
  1. ENTRESTO [Suspect]
     Active Substance: SACUBITRIL\VALSARTAN
     Indication: PRODUCT USED FOR UNKNOWN INDICATION
     Dosage: UNK UNK, BID
     Route: 048
     Dates: start: 20200504

REACTIONS (2)
  - Extrasystoles [Not Recovered/Not Resolved]
  - No adverse event [Recovering/Resolving]

NARRATIVE: CASE EVENT DATE: 20200514
